FAERS Safety Report 8912165 (Version 1)
Quarter: 2012Q4

REPORT INFORMATION
  Report Type: 
  Country: US (occurrence: US)
  Receive Date: 20121115
  Receipt Date: 20121115
  Transmission Date: 20130627
  Serious: Yes (Other)
  Sender: FDA-Public Use
  Company Number: US-SHIRE-ALL1-2012-05496

PATIENT
  Age: 13 None
  Sex: Male
  Weight: 40.82 kg

DRUGS (2)
  1. VYVANSE [Suspect]
     Indication: ATTENTION DEFICIT/HYPERACTIVITY DISORDER
     Dosage: 30 mg, 1x/day:qd
     Route: 048
     Dates: start: 2010, end: 2010
  2. VYVANSE [Suspect]
     Dosage: 40 mg, 1x/day:qd
     Route: 048
     Dates: start: 201210, end: 20121105

REACTIONS (12)
  - Suicidal ideation [Unknown]
  - Impulsive behaviour [Unknown]
  - Thinking abnormal [Unknown]
  - Antisocial behaviour [Recovered/Resolved]
  - Educational problem [Unknown]
  - Fatigue [Not Recovered/Not Resolved]
  - Decreased appetite [Not Recovered/Not Resolved]
  - Insomnia [Recovered/Resolved]
  - Irritability [Unknown]
  - Drug ineffective [Recovered/Resolved]
  - Headache [Unknown]
  - Initial insomnia [Not Recovered/Not Resolved]
